FAERS Safety Report 10903604 (Version 1)
Quarter: 2015Q1

REPORT INFORMATION
  Report Type: Spontaneous
  Country: US (occurrence: US)
  Receive Date: 20150311
  Receipt Date: 20150311
  Transmission Date: 20150721
  Serious: No
  Sender: FDA-Public Use
  Company Number: US-BIOGENIDEC-2015BI027590

PATIENT
  Sex: Female

DRUGS (3)
  1. COPAXONE [Concomitant]
     Active Substance: GLATIRAMER ACETATE
     Indication: MULTIPLE SCLEROSIS
  2. TECFIDERA [Suspect]
     Active Substance: DIMETHYL FUMARATE
     Indication: PRODUCT USED FOR UNKNOWN INDICATION
  3. REBIF [Concomitant]
     Active Substance: INTERFERON BETA-1A
     Indication: PRODUCT USED FOR UNKNOWN INDICATION

REACTIONS (6)
  - Blindness transient [Unknown]
  - Treatment failure [Unknown]
  - Multiple sclerosis [Unknown]
  - Hypoaesthesia [Unknown]
  - Musculoskeletal disorder [Unknown]
  - Coordination abnormal [Unknown]
